FAERS Safety Report 6307216-8 (Version None)
Quarter: 2009Q3

REPORT INFORMATION
  Report Type: 
  Country: None (occurrence: None)
  Receive Date: 20090813
  Receipt Date: 20090805
  Transmission Date: 20100115
  Serious: Yes (Hospitalization)
  Sender: FDA-Public Use
  Company Number: US-BIOGENIDEC-2009BI021968

PATIENT
  Age: 55 Year
  Sex: Male

DRUGS (1)
  1. AVONEX [Suspect]
     Indication: MULTIPLE SCLEROSIS
     Route: 030
     Dates: start: 20090602

REACTIONS (5)
  - BALANCE DISORDER [None]
  - BIPOLAR DISORDER [None]
  - COORDINATION ABNORMAL [None]
  - FALL [None]
  - MULTIPLE SCLEROSIS RELAPSE [None]
